FAERS Safety Report 4589184-2 (Version None)
Quarter: 2005Q1

REPORT INFORMATION
  Report Type: 
  Country: None (occurrence: None)
  Receive Date: 20050215
  Receipt Date: 20050215
  Transmission Date: 20050727
  Serious: Yes (Other)
  Sender: FDA-Public Use
  Company Number: None

PATIENT
  Sex: Male
  Weight: 58.0604 kg

DRUGS (1)
  1. FLUPHENAZINE [Suspect]
     Dosage: 25MG  Q2W  INTRAMUSCULAR
     Route: 030

REACTIONS (1)
  - MUSCULOSKELETAL STIFFNESS [None]
